FAERS Safety Report 10746978 (Version 1)
Quarter: 2015Q1

REPORT INFORMATION
  Report Type: Spontaneous
  Country: US (occurrence: US)
  Receive Date: 20150129
  Receipt Date: 20150129
  Transmission Date: 20150721
  Serious: Yes (Death, Hospitalization, Other)
  Sender: FDA-Public Use
  Company Number: US-ROCHE-1523903

PATIENT
  Age: 66 Year
  Sex: Female
  Weight: 56.25 kg

DRUGS (26)
  1. PREVACID [Concomitant]
     Active Substance: LANSOPRAZOLE
     Route: 048
  2. GLYCOPYRROLATE. [Concomitant]
     Active Substance: GLYCOPYRROLATE
  3. VECURONIUM [Concomitant]
     Active Substance: VECURONIUM BROMIDE
  4. NEOSTIGMINE BROMIDE [Concomitant]
     Active Substance: NEOSTIGMINE BROMIDE
  5. MIDODRINE [Concomitant]
     Active Substance: MIDODRINE
     Route: 048
  6. EPHEDRINE [Concomitant]
     Active Substance: EPHEDRINE
  7. CITALOPRAM [Concomitant]
     Active Substance: CITALOPRAM HYDROBROMIDE
     Route: 048
  8. NICARDIPINE [Concomitant]
     Active Substance: NICARDIPINE
  9. TEMAZEPAM. [Concomitant]
     Active Substance: TEMAZEPAM
  10. PHENYLEPHRINE [Concomitant]
     Active Substance: PHENYLEPHRINE\PHENYLEPHRINE HYDROCHLORIDE
  11. PREDNISONE. [Concomitant]
     Active Substance: PREDNISONE
     Route: 048
  12. ZANTAC [Concomitant]
     Active Substance: RANITIDINE HYDROCHLORIDE
  13. RITUXAN [Suspect]
     Active Substance: RITUXIMAB
     Indication: NON-HODGKIN^S LYMPHOMA
     Dosage: 375 MG/M2
     Route: 042
     Dates: start: 20041113, end: 20100204
  14. ACETAMINOPHEN. [Concomitant]
     Active Substance: ACETAMINOPHEN
     Route: 048
  15. LIDODERM [Concomitant]
     Active Substance: LIDOCAINE
     Route: 061
  16. FENTANYL. [Concomitant]
     Active Substance: FENTANYL
  17. ESMOLOL [Concomitant]
     Active Substance: ESMOLOL HYDROCHLORIDE
  18. PROPOFOL. [Concomitant]
     Active Substance: PROPOFOL
  19. ONDANSETRON [Concomitant]
     Active Substance: ONDANSETRON
  20. SENNA [Concomitant]
     Active Substance: SENNA LEAF\SENNOSIDES\SENNOSIDES A AND B
     Dosage: 1-2 TABS ONCE A DAY AT BED TIME
     Route: 048
  21. TYLENOL [Concomitant]
     Active Substance: ACETAMINOPHEN
  22. DEXAMETHASONE. [Concomitant]
     Active Substance: DEXAMETHASONE
  23. COLACE [Concomitant]
     Active Substance: DOCUSATE SODIUM
     Route: 048
  24. INSULIN ASPART [Concomitant]
     Active Substance: INSULIN ASPART
     Dosage: 6 UNITS  3 TIMES A DAY
     Route: 058
  25. MANNITOL. [Concomitant]
     Active Substance: MANNITOL
  26. CEFAZOLIN [Concomitant]
     Active Substance: CEFAZOLIN

REACTIONS (8)
  - Emotional distress [Unknown]
  - Dizziness [Unknown]
  - Progressive multifocal leukoencephalopathy [Fatal]
  - Thrombocytopenia [Unknown]
  - Pruritus [Unknown]
  - Haematoma [Unknown]
  - Pain [Unknown]
  - Sjogren^s syndrome [Unknown]

NARRATIVE: CASE EVENT DATE: 20050420
